FAERS Safety Report 4386653-5 (Version None)
Quarter: 2004Q2

REPORT INFORMATION
  Report Type: 
  Country: None (occurrence: None)
  Receive Date: 20040623
  Receipt Date: 20040616
  Transmission Date: 20050107
  Serious: Yes (Hospitalization, Other)
  Sender: FDA-Public Use
  Company Number: KII-2004-0011423

PATIENT
  Age: 73 Year
  Sex: Male

DRUGS (1)
  1. OXYCONTIN [Suspect]
     Dosage: 90 MG, ORAL
     Route: 048
     Dates: start: 20040213

REACTIONS (11)
  - ABNORMAL CHEST SOUND [None]
  - ACCIDENTAL OVERDOSE [None]
  - AGITATION [None]
  - BODY TEMPERATURE INCREASED [None]
  - COMA [None]
  - HYPOTENSION [None]
  - HYPOTHERMIA [None]
  - PNEUMONIA ASPIRATION [None]
  - RENAL FAILURE [None]
  - RESPIRATORY DEPRESSION [None]
  - RESPIRATORY DISTRESS [None]
